FAERS Safety Report 5964955-6 (Version None)
Quarter: 2008Q4

REPORT INFORMATION
  Report Type: 
  Country: None (occurrence: None)
  Receive Date: 20081121
  Receipt Date: 20081118
  Transmission Date: 20090506
  Serious: Yes (Life-Threatening, Hospitalization)
  Sender: FDA-Public Use
  Company Number: 2008SP002930

PATIENT
  Age: 38 Year
  Sex: Male
  Weight: 100.6985 kg

DRUGS (1)
  1. LUNESTA [Suspect]
     Indication: GENERALISED ANXIETY DISORDER
     Dosage: 0.3 MG;TID;ORAL
     Route: 048
     Dates: start: 20080828, end: 20081028

REACTIONS (2)
  - SUICIDE ATTEMPT [None]
  - TRAUMATIC BRAIN INJURY [None]
